FAERS Safety Report 25807988 (Version 1)
Quarter: 2025Q3

REPORT INFORMATION
  Report Type: Other
  Country: US (occurrence: US)
  Receive Date: 20250916
  Receipt Date: 20250916
  Transmission Date: 20251021
  Serious: No
  Sender: Alora Pharma
  Company Number: US-OSMOTICA PHARMACEUTICALS-2024ALO00530

PATIENT
  Weight: 58.05 kg

DRUGS (3)
  1. METHYLPHENIDATE HYDROCHLORIDE [Suspect]
     Active Substance: METHYLPHENIDATE HYDROCHLORIDE
     Indication: Attention deficit hyperactivity disorder
     Dosage: 54 MG, 1X/DAY ON WORK DAYS
     Route: 048
     Dates: start: 2024, end: 2024
  2. ESCITALOPRAM [Concomitant]
     Active Substance: ESCITALOPRAM OXALATE
  3. ESTRADIOL [Concomitant]
     Active Substance: ESTRADIOL

REACTIONS (4)
  - Disturbance in attention [Recovered/Resolved]
  - Therapeutic response changed [Recovered/Resolved]
  - Product substitution issue [Recovered/Resolved]
  - Product substitution issue [Recovered/Resolved]

NARRATIVE: CASE EVENT DATE: 20240101
